FAERS Safety Report 14871501 (Version 1)
Quarter: 2018Q2

REPORT INFORMATION
  Report Type: Spontaneous
  Country: US (occurrence: US)
  Receive Date: 20180509
  Receipt Date: 20180509
  Transmission Date: 20180711
  Serious: Yes (Other)
  Sender: FDA-Public Use
  Company Number: US-SA-2018SA125701

PATIENT
  Age: 70 Year
  Sex: Male

DRUGS (6)
  1. LANTUS SOLOSTAR [Suspect]
     Active Substance: INSULIN GLARGINE
     Indication: TYPE 1 DIABETES MELLITUS
     Dosage: DOSE:2 UNIT(S)
     Route: 051
     Dates: start: 201804
  2. LANTUS SOLOSTAR [Suspect]
     Active Substance: INSULIN GLARGINE
     Indication: TYPE 1 DIABETES MELLITUS
     Dosage: DOSE:3 UNIT(S)
     Route: 051
     Dates: start: 2008
  3. SOLOSTAR [Suspect]
     Active Substance: DEVICE
     Indication: TYPE 1 DIABETES MELLITUS
     Dosage: DOSE:3 UNIT(S)
     Route: 051
     Dates: start: 2008
  4. SOLOSTAR [Suspect]
     Active Substance: DEVICE
     Indication: TYPE 1 DIABETES MELLITUS
     Route: 051
  5. SOLOSTAR [Suspect]
     Active Substance: DEVICE
     Indication: TYPE 1 DIABETES MELLITUS
     Dosage: DOSE:2 UNIT(S)
     Route: 051
     Dates: start: 201804
  6. LANTUS SOLOSTAR [Suspect]
     Active Substance: INSULIN GLARGINE
     Indication: TYPE 1 DIABETES MELLITUS
     Dosage: DOSE 3 UNIT AT NIGHT AND 1 UNIT AT 10 AM
     Route: 051

REACTIONS (6)
  - Atrial fibrillation [Unknown]
  - Product use issue [Unknown]
  - Blood glucose fluctuation [Recovered/Resolved]
  - Injection site bruising [Unknown]
  - Drug ineffective [Unknown]
  - Visual impairment [Unknown]
